FAERS Safety Report 18529480 (Version 2)
Quarter: 2020Q4

REPORT INFORMATION
  Report Type: Spontaneous
  Country: US (occurrence: US)
  Receive Date: 20201120
  Receipt Date: 20201228
  Transmission Date: 20210114
  Serious: Yes (Other)
  Sender: FDA-Public Use
  Company Number: US-ALLERGAN-2044859US

PATIENT
  Sex: Female

DRUGS (1)
  1. REFRESH CELLUVISC [Suspect]
     Active Substance: CARBOXYMETHYLCELLULOSE SODIUM
     Indication: DRY EYE
     Dosage: 1 DROP IN EACH EYE UP TO 6 TIMES DAILY
     Route: 047

REACTIONS (4)
  - Product container issue [Unknown]
  - Therapy interrupted [Unknown]
  - Hypersensitivity [Unknown]
  - Breast cancer [Unknown]
